FAERS Safety Report 8701568 (Version 2)
Quarter: 2012Q4

REPORT INFORMATION
  Report Type: 
  Country: US (occurrence: US)
  Receive Date: 20120803
  Receipt Date: 20121018
  Transmission Date: 20130627
  Serious: Yes (Death)
  Sender: FDA-Public Use
  Company Number: US-BIOGENIDEC-2012BI027666

PATIENT
  Sex: Female

DRUGS (1)
  1. AVONEX [Suspect]
     Indication: MULTIPLE SCLEROSIS
     Route: 030

REACTIONS (6)
  - Secondary progressive multiple sclerosis [Fatal]
  - Blindness [Unknown]
  - Urinary incontinence [Unknown]
  - Urinary tract infection [Unknown]
  - Decubitus ulcer [Unknown]
  - Mobility decreased [Unknown]
